FAERS Safety Report 21084671 (Version 2)
Quarter: 2022Q3

REPORT INFORMATION
  Report Type: Spontaneous
  Country: US (occurrence: US)
  Receive Date: 20220714
  Receipt Date: 20220715
  Transmission Date: 20221027
  Serious: No
  Sender: FDA-Public Use
  Company Number: US-PFIZER INC-202200957290

PATIENT

DRUGS (2)
  1. INLYTA [Interacting]
     Active Substance: AXITINIB
     Indication: Neoplasm malignant
     Dosage: UNK
  2. PAXLOVID [Interacting]
     Active Substance: NIRMATRELVIR\RITONAVIR
     Indication: COVID-19 treatment
     Dosage: UNK

REACTIONS (3)
  - Glomerular filtration rate decreased [Unknown]
  - Labelled drug-drug interaction medication error [Unknown]
  - COVID-19 [Unknown]
